FAERS Safety Report 6250153-8 (Version None)
Quarter: 2009Q2

REPORT INFORMATION
  Report Type: 
  Country: None (occurrence: None)
  Receive Date: 20090626
  Receipt Date: 20090615
  Transmission Date: 20091009
  Serious: Yes (Life-Threatening, Hospitalization)
  Sender: FDA-Public Use
  Company Number: PAR_03057_2009

PATIENT
  Age: 50 Year
  Sex: Male

DRUGS (8)
  1. MINOXIDIL [Suspect]
     Indication: HYPERTENSION
     Dosage: (DF ORAL)
     Route: 048
  2. NIFEDIPINE [Concomitant]
  3. CLONIDINE [Concomitant]
  4. PHENYTOIN [Concomitant]
  5. RANITIDINE [Concomitant]
  6. METOPROLOL TARTRATE [Concomitant]
  7. ASPIRIN [Concomitant]
  8. LEVETIRACETAM [Concomitant]

REACTIONS (8)
  - ANXIETY [None]
  - CELLULITIS [None]
  - DEHYDRATION [None]
  - HEPATITIS C POSITIVE [None]
  - METAL POISONING [None]
  - PANCYTOPENIA [None]
  - RENAL FAILURE CHRONIC [None]
  - STEVENS-JOHNSON SYNDROME [None]
